FAERS Safety Report 13708204 (Version 2)
Quarter: 2017Q3

REPORT INFORMATION
  Report Type: Report from Study
  Country: BR (occurrence: BR)
  Receive Date: 20170630
  Receipt Date: 20170717
  Transmission Date: 20171127
  Serious: Yes (Other)
  Sender: FDA-Public Use
  Company Number: PHHY2017BR092032

PATIENT
  Sex: Female
  Weight: 75 kg

DRUGS (1)
  1. VIGADEXA [Suspect]
     Active Substance: DEXAMETHASONE SODIUM PHOSPHATE\MOXIFLOXACIN HYDROCHLORIDE
     Indication: PRODUCT USED FOR UNKNOWN INDICATION
     Dosage: 5 MG, QID (FOUR TIMES A DAY)
     Route: 047
     Dates: start: 20170505, end: 20170512

REACTIONS (5)
  - Facial paralysis [Unknown]
  - Eye inflammation [Recovering/Resolving]
  - Visual impairment [Recovering/Resolving]
  - Corneal oedema [Recovered/Resolved]
  - Therapeutic response decreased [Unknown]
